FAERS Safety Report 7210389-6 (Version None)
Quarter: 2011Q1

REPORT INFORMATION
  Report Type: 
  Country: None (occurrence: None)
  Receive Date: 20110105
  Receipt Date: 20101224
  Transmission Date: 20110831
  Serious: Yes (Hospitalization, Other)
  Sender: FDA-Public Use
  Company Number: PHFR2010GB04909

PATIENT
  Sex: Female

DRUGS (6)
  1. CLOZARIL [Suspect]
     Indication: SCHIZOPHRENIA
     Dosage: 100MG MANE AND 300MG NOCTE
     Route: 048
     Dates: start: 20040806
  2. DONEPEZIL HCL [Concomitant]
     Indication: DEMENTIA ALZHEIMER'S TYPE
     Dosage: 5MG/DAY
     Route: 048
     Dates: start: 20101116
  3. LITHIUM CARBONATE [Concomitant]
     Dosage: 400MG/DAY
     Route: 048
  4. LEVOTHYROXINE [Concomitant]
     Dosage: 50UG/DAY
     Route: 048
  5. LAMOTRIGINE [Concomitant]
     Indication: MOOD ALTERED
     Dosage: 50MG/DAY
     Route: 048
  6. LOFEPRAMINE [Concomitant]
     Indication: MOOD ALTERED
     Dosage: 70MG MANE + 140MG NOCTE
     Route: 048

REACTIONS (7)
  - OEDEMA PERIPHERAL [None]
  - CIRCULATORY COLLAPSE [None]
  - HAND FRACTURE [None]
  - FALL [None]
  - GAIT DISTURBANCE [None]
  - CONTUSION [None]
  - DYSARTHRIA [None]
